FAERS Safety Report 4990356-3 (Version None)
Quarter: 2006Q2

REPORT INFORMATION
  Report Type: 
  Country: None (occurrence: None)
  Receive Date: 20060427
  Receipt Date: 20060418
  Transmission Date: 20061013
  Serious: Yes (Death, Hospitalization)
  Sender: FDA-Public Use
  Company Number: HQWYE864218APR06

PATIENT
  Age: 81 Year
  Sex: Male

DRUGS (11)
  1. CORDARONE [Suspect]
     Dosage: 200 MG 1X PER 1 WK
     Route: 048
     Dates: end: 20060309
  2. ATARAX [Suspect]
     Dosage: 1 DOSE 1X PER 1 DAY
     Route: 048
  3. LOVENOX [Suspect]
     Dosage: 40 MG 1X PER 1 DAY
     Route: 058
     Dates: end: 20060307
  4. PRIMPERAN TAB [Suspect]
     Dosage: 30 MG 1X PER 1 DAY
     Route: 048
     Dates: start: 20060303, end: 20060308
  5. RAMIPRIL [Suspect]
     Dosage: 5 MG 1X PER 1 DAY
     Route: 048
  6. XATRAL  (ALFUZOSIN, ) [Suspect]
     Dosage: 1 DOSE 1X PER 1 DAY
     Route: 048
     Dates: end: 20060309
  7. LYTOS (CLODRONATE DISODIUM) [Concomitant]
  8. DUPHALAC [Concomitant]
  9. LANSOYL (PARAFFIN, LIQUID) [Concomitant]
  10. XANAX [Concomitant]
  11. DURAGESIC-100 [Concomitant]

REACTIONS (9)
  - AGRANULOCYTOSIS [None]
  - BLOOD PRESSURE DECREASED [None]
  - HAEMOGLOBIN DECREASED [None]
  - LYMPHOCYTE COUNT ABNORMAL [None]
  - NEUTROPHIL COUNT DECREASED [None]
  - PLATELET COUNT INCREASED [None]
  - PYREXIA [None]
  - SEPTIC SHOCK [None]
  - TACHYARRHYTHMIA [None]
